FAERS Safety Report 18151796 (Version 1)
Quarter: 2020Q3

REPORT INFORMATION
  Report Type: Spontaneous
  Country: US (occurrence: US)
  Receive Date: 20200814
  Receipt Date: 20200814
  Transmission Date: 20201103
  Serious: No
  Sender: FDA-Public Use
  Company Number: US-SA-2020SA210568

PATIENT

DRUGS (1)
  1. LANTUS [Suspect]
     Active Substance: INSULIN GLARGINE
     Indication: TYPE 2 DIABETES MELLITUS
     Dosage: 45 IU, UNK
     Route: 065
     Dates: start: 20200811

REACTIONS (2)
  - Pruritus [Unknown]
  - Limb mass [Unknown]

NARRATIVE: CASE EVENT DATE: 20200811
